FAERS Safety Report 8340665-5 (Version None)
Quarter: 2012Q2

REPORT INFORMATION
  Report Type: 
  Country: None (occurrence: None)
  Receive Date: 20120507
  Receipt Date: 20120425
  Transmission Date: 20120825
  Serious: Yes (Life-Threatening, Hospitalization)
  Sender: FDA-Public Use
  Company Number: HR-PFIZER INC-2012109684

PATIENT
  Age: 61 Year

DRUGS (2)
  1. CISPLATIN [Suspect]
     Indication: LUNG NEOPLASM
     Dosage: UNK
     Route: 042
     Dates: start: 20120201, end: 20120203
  2. ETOPOSIDE [Suspect]
     Indication: LUNG NEOPLASM
     Dosage: UNK
     Route: 042
     Dates: start: 20120201, end: 20120203

REACTIONS (5)
  - ANAEMIA [None]
  - MALAISE [None]
  - FEBRILE NEUTROPENIA [None]
  - THROMBOCYTOPENIA [None]
  - LEUKOPENIA [None]
